FAERS Safety Report 8003298-6 (Version None)
Quarter: 2011Q4

REPORT INFORMATION
  Report Type: 
  Country: None (occurrence: None)
  Receive Date: 20111222
  Receipt Date: 20111219
  Transmission Date: 20120403
  Serious: Yes (Other)
  Sender: FDA-Public Use
  Company Number: PHHY2011DE111020

PATIENT
  Age: 47 Year
  Sex: Female

DRUGS (1)
  1. GLEEVEC [Suspect]
     Dosage: 100 MG, UNK
     Route: 048
     Dates: start: 20110101

REACTIONS (1)
  - POSTMENOPAUSAL HAEMORRHAGE [None]
